FAERS Safety Report 9629259 (Version 1)
Quarter: 2013Q4

REPORT INFORMATION
  Report Type: Spontaneous
  Country: US (occurrence: US)
  Receive Date: 20131017
  Receipt Date: 20131017
  Transmission Date: 20140711
  Serious: No
  Sender: FDA-Public Use
  Company Number: US-ASTRAZENECA-2013SE63916

PATIENT
  Age: 47 Year
  Sex: Female
  Weight: 64.9 kg

DRUGS (13)
  1. SYMBICORT PMDI [Suspect]
     Indication: DYSPNOEA
     Dosage: 2 PUFFS BID
     Route: 055
  2. OMEPRAZOLE [Suspect]
     Indication: GASTRIC DISORDER
     Dosage: GENERIC
     Route: 048
     Dates: start: 2008
  3. CRESTOR [Suspect]
     Indication: BLOOD CHOLESTEROL INCREASED
     Route: 048
     Dates: start: 20130805, end: 20130808
  4. CRESTOR [Suspect]
     Indication: BLOOD CHOLESTEROL INCREASED
     Dosage: SPLIT THE CRESTOR 20 MG TABLET IN HALF AND TAKE A HALF TABLET
     Route: 048
     Dates: start: 20130809, end: 20130810
  5. GABAPENTIN [Concomitant]
  6. PHENOFIBRATE [Concomitant]
     Indication: BLOOD CHOLESTEROL INCREASED
  7. CARTIA [Concomitant]
     Indication: CARDIAC DISORDER
  8. METFORMIN [Concomitant]
     Indication: DIABETES MELLITUS
  9. PRIAMPERENE [Concomitant]
     Indication: DIURETIC THERAPY
  10. ROPINIROLD [Concomitant]
     Indication: RESTLESS LEGS SYNDROME
  11. VITAMIN D [Concomitant]
  12. SPIRIVA [Concomitant]
     Indication: LUNG DISORDER
  13. KAOPLIN [Concomitant]
     Indication: NERVOUS SYSTEM DISORDER

REACTIONS (16)
  - Gait disturbance [Recovering/Resolving]
  - Gait disturbance [Recovering/Resolving]
  - Adverse event [Recovering/Resolving]
  - Diabetes mellitus [Unknown]
  - Intervertebral disc degeneration [Unknown]
  - Restless legs syndrome [Unknown]
  - Cardiac disorder [Unknown]
  - Ulcer [Unknown]
  - Blood cholesterol increased [Unknown]
  - Hypersomnia [Unknown]
  - Feeling abnormal [Unknown]
  - Hepatic enzyme increased [Unknown]
  - Blood glucose increased [Recovering/Resolving]
  - Dizziness [Recovering/Resolving]
  - Off label use [Recovering/Resolving]
  - Intentional drug misuse [Recovering/Resolving]
